FAERS Safety Report 16658411 (Version 1)
Quarter: 2019Q3

REPORT INFORMATION
  Report Type: Spontaneous
  Country: US (occurrence: US)
  Receive Date: 20190801
  Receipt Date: 20190801
  Transmission Date: 20191004
  Serious: Yes (Disabling)
  Sender: FDA-Public Use
  Company Number: None

PATIENT
  Age: 40 Year
  Sex: Male
  Weight: 67.5 kg

DRUGS (2)
  1. TRIAMCINOLONE CREAM [Suspect]
     Active Substance: TRIAMCINOLONE
  2. DESONIDE LOTION [Suspect]
     Active Substance: DESONIDE
     Indication: ECZEMA

REACTIONS (2)
  - Steroid withdrawal syndrome [None]
  - Erythema [None]

NARRATIVE: CASE EVENT DATE: 20120125
